FAERS Safety Report 18635388 (Version 1)
Quarter: 2020Q4

REPORT INFORMATION
  Report Type: Spontaneous
  Country: US (occurrence: US)
  Receive Date: 20201218
  Receipt Date: 20201218
  Transmission Date: 20210114
  Serious: No
  Sender: FDA-Public Use
  Company Number: US-THERAPEUTICSMD-2020TMD04299

PATIENT
  Age: 79 Year
  Sex: Female
  Weight: 90.7 kg

DRUGS (16)
  1. IMVEXXY [Suspect]
     Active Substance: ESTRADIOL
     Indication: INCONTINENCE
     Dosage: UNK
     Route: 067
     Dates: start: 202008, end: 2020
  2. CALCIUM [Concomitant]
     Active Substance: CALCIUM
  3. VITAMIN D [Concomitant]
     Active Substance: VITAMIN D NOS
  4. GENERIC LASIX [Concomitant]
     Active Substance: FUROSEMIDE
     Dosage: A VERY SMALL DOSE
  5. COENZYME Q10 [Concomitant]
     Active Substance: DIETARY SUPPLEMENT\UBIDECARENONE
  6. IMVEXXY [Suspect]
     Active Substance: ESTRADIOL
     Dosage: 1 INSERT, 2X/WEEK BEFORE BED
     Route: 067
     Dates: start: 2020
  7. VENLAFAXINE [Concomitant]
     Active Substance: VENLAFAXINE HYDROCHLORIDE
     Dosage: 150 MG, 1X/DAY
  8. GREEN PLUS [Concomitant]
  9. AMLODIPINE [Concomitant]
     Active Substance: AMLODIPINE BESYLATE
     Dosage: 5 MG, 1X/DAY
  10. XANAX [Concomitant]
     Active Substance: ALPRAZOLAM
     Dosage: 0.25 MG, AS NEEDED
  11. MAGNESIUM [Concomitant]
     Active Substance: MAGNESIUM
  12. OMEGA COMBINATION [Concomitant]
  13. METOPROLOL. [Concomitant]
     Active Substance: METOPROLOL
     Dosage: 100 MG, 2X/DAY
  14. VITAMIN C [Concomitant]
     Active Substance: ASCORBIC ACID
  15. MULTIVITAMIN [Concomitant]
     Active Substance: VITAMINS
  16. CRANBERRY. [Concomitant]
     Active Substance: CRANBERRY

REACTIONS (2)
  - Paraesthesia [Not Recovered/Not Resolved]
  - Off label use [Not Recovered/Not Resolved]

NARRATIVE: CASE EVENT DATE: 202008
